FAERS Safety Report 24165803 (Version 1)
Quarter: 2024Q3

REPORT INFORMATION
  Report Type: Report from Study
  Country: US (occurrence: None)
  Receive Date: 20240802
  Receipt Date: 20240802
  Transmission Date: 20241017
  Serious: Yes (Hospitalization)
  Sender: ASTRAZENECA
  Company Number: 2023A136011

PATIENT
  Age: 26698 Day
  Sex: Female

DRUGS (1)
  1. DALIRESP [Suspect]
     Active Substance: ROFLUMILAST
     Route: 048

REACTIONS (6)
  - Pain in extremity [Unknown]
  - Cough [Unknown]
  - Limb injury [Unknown]
  - Chronic obstructive pulmonary disease [Unknown]
  - Emphysema [Unknown]
  - Oedema [Unknown]

NARRATIVE: CASE EVENT DATE: 20230310
